FAERS Safety Report 21967905 (Version 1)
Quarter: 2023Q1

REPORT INFORMATION
  Report Type: Spontaneous
  Country: US (occurrence: US)
  Receive Date: 20230208
  Receipt Date: 20230208
  Transmission Date: 20230418
  Serious: No
  Sender: FDA-Public Use
  Company Number: US-PFIZER INC-PV202300023883

PATIENT
  Age: 4 Decade
  Sex: Female

DRUGS (1)
  1. CIBINQO [Suspect]
     Active Substance: ABROCITINIB
     Dosage: UNK, 1X/DAY (100MG OR 200MG QD)

REACTIONS (2)
  - Laboratory test abnormal [Unknown]
  - Product prescribing error [Unknown]
